FAERS Safety Report 4931426-5 (Version None)
Quarter: 2006Q1

REPORT INFORMATION
  Report Type: 
  Country: None (occurrence: None)
  Receive Date: 20060303
  Receipt Date: 20060227
  Transmission Date: 20060701
  Serious: Yes (Hospitalization)
  Sender: FDA-Public Use
  Company Number: NSADSS2002035548

PATIENT
  Sex: Male
  Weight: 104.78 kg

DRUGS (9)
  1. REMICADE [Suspect]
     Route: 041
  2. REMICADE [Suspect]
     Route: 041
  3. REMICADE [Suspect]
     Route: 041
  4. REMICADE [Suspect]
     Indication: RHEUMATOID ARTHRITIS
     Route: 041
  5. COZAAR [Concomitant]
  6. LASIX [Concomitant]
  7. NPH INSULIN [Concomitant]
  8. METHOTREXATE [Concomitant]
  9. PREDNISONE [Concomitant]

REACTIONS (7)
  - DISSEMINATED TUBERCULOSIS [None]
  - HEPATOMEGALY [None]
  - LIVER FUNCTION TEST ABNORMAL [None]
  - NAUSEA [None]
  - PANCREATITIS ACUTE [None]
  - PYREXIA [None]
  - VOMITING [None]
